FAERS Safety Report 6993091-5 (Version None)
Quarter: 2010Q3

REPORT INFORMATION
  Report Type: 
  Country: None (occurrence: None)
  Receive Date: 20100917
  Receipt Date: 20100615
  Transmission Date: 20110219
  Serious: No
  Sender: FDA-Public Use
  Company Number: US-ASTRAZENECA-2009UW21219

PATIENT
  Age: 665 Month
  Sex: Male
  Weight: 108.9 kg

DRUGS (3)
  1. SEROQUEL [Suspect]
     Indication: POST-TRAUMATIC STRESS DISORDER
     Route: 048
     Dates: start: 20060501, end: 20080630
  2. SERTRALINE HYDROCHLORIDE [Concomitant]
     Indication: DEPRESSION
  3. GLUCOPHAGE [Concomitant]
     Indication: TYPE 2 DIABETES MELLITUS

REACTIONS (6)
  - BLOOD CHOLESTEROL INCREASED [None]
  - DIABETES MELLITUS [None]
  - HYPERLIPIDAEMIA [None]
  - HYPERTENSION [None]
  - OBESITY [None]
  - WEIGHT INCREASED [None]
